FAERS Safety Report 6638513-4 (Version None)
Quarter: 2010Q1

REPORT INFORMATION
  Report Type: 
  Country: None (occurrence: None)
  Receive Date: 20100317
  Receipt Date: 20100305
  Transmission Date: 20100710
  Serious: Yes (Hospitalization)
  Sender: FDA-Public Use
  Company Number: US-ELI_LILLY_AND_COMPANY-US200905004506

PATIENT
  Sex: Female
  Weight: 109.75 kg

DRUGS (17)
  1. BYETTA [Suspect]
     Indication: TYPE 2 DIABETES MELLITUS
     Dosage: UNK, UNKNOWN
     Route: 065
     Dates: start: 20061001, end: 20070301
  2. METFORMIN HYDROCHLORIDE [Concomitant]
     Indication: DIABETES MELLITUS
     Dates: start: 20000101
  3. PREVACID [Concomitant]
     Indication: GASTROOESOPHAGEAL REFLUX DISEASE
     Dosage: 30 MG, DAILY (1/D)
     Route: 048
     Dates: start: 19910101
  4. AMBIEN [Concomitant]
     Indication: INSOMNIA
     Dosage: UNK, AS NEEDED
     Dates: start: 19840101
  5. PREMARIN [Concomitant]
     Indication: HORMONE REPLACEMENT THERAPY
     Dosage: 0.625 MG, DAILY (1/D)
     Route: 048
     Dates: start: 19800101
  6. TYLENOL (CAPLET) [Concomitant]
     Indication: PAIN
     Dosage: UNK, AS NEEDED
     Dates: start: 19850101
  7. BENAZEPRIL HYDROCHLORIDE [Concomitant]
     Dosage: 10 MG, DAILY (1/D)
  8. BENAZEPRIL HYDROCHLORIDE [Concomitant]
     Dosage: 20 MG, DAILY (1/D)
  9. TOPROL-XL [Concomitant]
     Dosage: 50 MG, DAILY (1/D)
  10. TOPROL-XL [Concomitant]
     Dosage: 50 MG, 2/D
     Route: 048
  11. HYDROCHLOROTHIAZIDE [Concomitant]
     Dosage: 25 MG, DAILY (1/D)
     Route: 048
  12. LASIX [Concomitant]
     Dosage: 20 MG, DAILY (1/D)
     Route: 048
  13. NICARDIPINE HYDROCHLORIDE [Concomitant]
     Dosage: 30 MG, 2/D
  14. PAROXETINE HCL [Concomitant]
     Dosage: 20 MG, DAILY (1/D)
     Route: 048
  15. NITROFURANTOIN [Concomitant]
     Dosage: 100 MG, 2/D
     Route: 048
  16. ACCUPRIL [Concomitant]
     Dosage: 20 MG, DAILY (1/D)
  17. AVANDIA [Concomitant]
     Dosage: 4 MG, DAILY (1/D)

REACTIONS (1)
  - PANCREATITIS ACUTE [None]
